FAERS Safety Report 8787639 (Version 1)
Quarter: 2012Q4

REPORT INFORMATION
  Report Type: 
  Country: US (occurrence: US)
  Receive Date: 20120914
  Receipt Date: 20120914
  Transmission Date: 20130627
  Serious: No
  Sender: FDA-Public Use
  Company Number: US-VERTEX PHARMACEUTICAL INC.-AE-2012-009511

PATIENT
  Age: 49 Year
  Sex: Male
  Weight: 100 kg

DRUGS (8)
  1. INCIVEK [Suspect]
     Indication: HEPATITIS C
     Route: 048
     Dates: start: 20120625
  2. PEGASYS [Concomitant]
     Indication: HEPATITIS C
     Route: 058
     Dates: start: 20120625
  3. RIBAVIRIN [Concomitant]
     Indication: HEPATITIS C
     Route: 048
     Dates: start: 20120625
  4. CELEXA [Concomitant]
     Route: 048
  5. ATOMOEXTINE/STRATTERA [Concomitant]
     Indication: ATTENTION DEFICIT/HYPERACTIVITY DISORDER
     Route: 048
  6. BUSPAR [Concomitant]
     Indication: ANXIETY
     Route: 048
  7. TRAZODONE [Concomitant]
     Indication: DEPRESSION
     Route: 048
  8. MULTIVITAMIN [Concomitant]
     Route: 048

REACTIONS (9)
  - Depressed mood [Unknown]
  - Sleep disorder [Unknown]
  - Crying [Unknown]
  - Bone pain [Not Recovered/Not Resolved]
  - Asthenia [Unknown]
  - Fatigue [Unknown]
  - Haematochezia [Not Recovered/Not Resolved]
  - Nausea [Unknown]
  - Pruritus [Unknown]
